FAERS Safety Report 14090602 (Version 1)
Quarter: 2017Q4

REPORT INFORMATION
  Report Type: Other
  Country: AU (occurrence: AU)
  Receive Date: 20171015
  Receipt Date: 20171015
  Transmission Date: 20180321
  Serious: Yes (Death)
  Sender: FDA-Public Use
  Company Number: AU-ALSI-201700351

PATIENT
  Age: 1 Day
  Sex: Female

DRUGS (1)
  1. OXYGEN 100% [Suspect]
     Active Substance: OXYGEN
     Indication: OXYGEN THERAPY

REACTIONS (3)
  - Accidental underdose [Fatal]
  - Device deployment issue [Fatal]
  - Coma [Fatal]
